FAERS Safety Report 7037584-3 (Version None)
Quarter: 2010Q4

REPORT INFORMATION
  Report Type: 
  Country: None (occurrence: None)
  Receive Date: 20101011
  Receipt Date: 20100928
  Transmission Date: 20110411
  Serious: Yes (Other)
  Sender: FDA-Public Use
  Company Number: PHHY2010BR31494

PATIENT
  Age: 85 Year
  Sex: Female
  Weight: 58 kg

DRUGS (13)
  1. FORASEQ [Suspect]
     Indication: EMPHYSEMA
     Dosage: 1 DF, BID
  2. VITAMIN B COMPLEX CAP [Concomitant]
     Indication: VITAMIN SUPPLEMENTATION
     Dosage: 1 DF, BID
  3. FOLIC ACID [Concomitant]
     Indication: VITAMIN SUPPLEMENTATION
     Dosage: 1 TABLET IN THE MORNING
  4. OMEPRAZOLE [Concomitant]
     Indication: GASTRIC DISORDER
     Dosage: 1 CAPSULE IN THE MORNING
     Route: 048
  5. EUTIROX [Concomitant]
     Indication: THYROID DISORDER
     Dosage: 2 TABLETS IN THE MORNING
     Route: 048
  6. ACETYLSALICYLIC ACID SRT [Concomitant]
     Dosage: 1 TABLET AFTER THE LUNCH
     Route: 048
  7. SIMVASTATIN [Concomitant]
     Dosage: 1 TABLET AT NIGHT
     Route: 048
  8. HUMULIN R [Concomitant]
     Indication: DIABETES MELLITUS
     Dosage: 10 UNITS IN THE MORNING AND 20 UNITS AT NIGHT
     Route: 058
  9. AMIORON [Concomitant]
     Indication: CARDIAC DISORDER
     Dosage: 1 TABLET DAILY
     Route: 048
  10. AMIORON [Concomitant]
     Dosage: HALF A TABLET IN THE MORNING
     Route: 048
  11. FLUIMICIL [Concomitant]
     Indication: EMPHYSEMA
     Dosage: 1 SACHET AT NIGHT
     Route: 048
  12. HIRUDOID [Concomitant]
     Indication: SKIN DISORDER
     Dosage: 1 APPLICATION TWICE A DAY (ONLY WHEN THE SPOTS APPEARED)
     Route: 061
  13. ERYTHROPOIETIN HUMAN [Concomitant]

REACTIONS (4)
  - ALOPECIA [None]
  - DIALYSIS [None]
  - RENAL IMPAIRMENT [None]
  - SKIN DISORDER [None]
